FAERS Safety Report 7228229-8 (Version None)
Quarter: 2011Q1

REPORT INFORMATION
  Report Type: 
  Country: None (occurrence: None)
  Receive Date: 20110114
  Receipt Date: 20100112
  Transmission Date: 20110831
  Serious: Yes (Other)
  Sender: FDA-Public Use
  Company Number: CHPA2010US00614

PATIENT
  Age: 80 Year
  Sex: Female
  Weight: 58.957 kg

DRUGS (5)
  1. THERAFLU FLU AND SORE THROAT [Suspect]
     Indication: RHINORRHOEA
  2. THERAFLU FLU AND SORE THROAT [Suspect]
     Indication: ASTHENOPIA
  3. THERAFLU FLU AND SORE THROAT [Suspect]
     Indication: COUGH
  4. THERAFLU FLU AND SORE THROAT [Suspect]
     Dosage: 1 TSP, 4-6 TIMES DAILY
     Route: 048
     Dates: start: 20100101, end: 20100105
  5. THERAFLU FLU AND SORE THROAT [Suspect]
     Indication: PYREXIA

REACTIONS (5)
  - PHARYNGEAL OEDEMA [None]
  - CONJUNCTIVITIS INFECTIVE [None]
  - DRUG INEFFECTIVE [None]
  - SWELLING FACE [None]
  - HYPERSENSITIVITY [None]
